FAERS Safety Report 5497539-7 (Version None)
Quarter: 2007Q4

REPORT INFORMATION
  Report Type: 
  Country: None (occurrence: None)
  Receive Date: 20071025
  Receipt Date: 20061205
  Transmission Date: 20080405
  Serious: No
  Sender: FDA-Public Use
  Company Number: A0630411A

PATIENT
  Age: 54 Year
  Sex: Female

DRUGS (7)
  1. ADVAIR DISKUS 100/50 [Suspect]
     Indication: BRONCHITIS
     Route: 055
     Dates: start: 20061204
  2. FIORINAL W/CODEINE [Concomitant]
  3. RHINOCORT [Concomitant]
  4. AMOXICILLIN [Concomitant]
  5. METOPROLOL TARTRATE [Concomitant]
  6. VALIUM [Concomitant]
  7. PREMPRO [Concomitant]

REACTIONS (7)
  - CARDIAC FLUTTER [None]
  - COLITIS ULCERATIVE [None]
  - DIARRHOEA [None]
  - DRUG HYPERSENSITIVITY [None]
  - PALPITATIONS [None]
  - PHARYNGOLARYNGEAL PAIN [None]
  - RHINORRHOEA [None]
